FAERS Safety Report 5909736-4 (Version None)
Quarter: 2008Q4

REPORT INFORMATION
  Report Type: 
  Country: None (occurrence: None)
  Receive Date: 20081002
  Receipt Date: 20080919
  Transmission Date: 20090506
  Serious: Yes (Death)
  Sender: FDA-Public Use
  Company Number: 2008002455

PATIENT
  Age: 76 Year
  Sex: Male

DRUGS (1)
  1. ERLOTINIB / PLACEBO (ERLOTINIB HC1) (TABLET) (ERLOTINIB HC1) [Suspect]
     Indication: NON-SMALL CELL LUNG CANCER
     Dosage: ORAL
     Route: 048

REACTIONS (1)
  - DEATH [None]
